FAERS Safety Report 11884415 (Version 1)
Quarter: 2015Q4

REPORT INFORMATION
  Report Type: Spontaneous
  Country: US (occurrence: None)
  Receive Date: 20151231
  Receipt Date: 20151231
  Transmission Date: 20160305
  Serious: Yes (Hospitalization)
  Sender: FDA-Public Use
  Company Number: None

PATIENT
  Age: 70 Year
  Sex: Female
  Weight: 50.5 kg

DRUGS (19)
  1. TRAZODONE (DESYREL) [Concomitant]
  2. WARFARIN [Suspect]
     Active Substance: WARFARIN
     Indication: DEEP VEIN THROMBOSIS
     Route: 048
  3. LIDOCAINE (XYLOCAINE) [Concomitant]
  4. METOPROLOL (LOPRESSOR) [Concomitant]
  5. OMEPRAZOLE (PRILOSEC) [Concomitant]
  6. FENTANYL (DURAGESIC) [Concomitant]
  7. ACETAMINOPHEN. [Concomitant]
     Active Substance: ACETAMINOPHEN
  8. LACTOBACILLUS (ACIDOPHILUS) [Concomitant]
  9. ZOFRAN [Concomitant]
     Active Substance: ONDANSETRON HYDROCHLORIDE
  10. HYDROMORPHONE (DILAUDID) [Concomitant]
  11. ROXICODONE [Concomitant]
     Active Substance: OXYCODONE HYDROCHLORIDE
  12. METHOCARBAMOL (ROBAXIN) [Concomitant]
  13. PANTOPRAZOLE (PROTONIX) [Concomitant]
  14. ESCITALOPRAM (LEXAPRO) [Concomitant]
  15. CHOLECALCIFEROL (VITAMIN D3) [Concomitant]
  16. LIDOCAINE (LIDODERM) [Concomitant]
  17. BISACODYL (BISACODYL LAXATIVE) [Concomitant]
  18. MELATONIN [Concomitant]
     Active Substance: MELATONIN
  19. B COMPLEX-C-FOLIC ACID (NEPHROCAPS) [Concomitant]

REACTIONS (7)
  - Hypoglycaemia [None]
  - Device related sepsis [None]
  - Haematochezia [None]
  - Hyponatraemia [None]
  - Malnutrition [None]
  - Staphylococcal infection [None]
  - Hypothermia [None]

NARRATIVE: CASE EVENT DATE: 20151110
